FAERS Safety Report 4859799-2 (Version None)
Quarter: 2005Q4

REPORT INFORMATION
  Report Type: 
  Country: None (occurrence: None)
  Receive Date: 20051219
  Receipt Date: 20031121
  Transmission Date: 20060501
  Serious: Yes (Disabling)
  Sender: FDA-Public Use
  Company Number: JP-GLAXOSMITHKLINE-B0316565A

PATIENT
  Age: 62 Year
  Sex: Male

DRUGS (10)
  1. VALTREX [Suspect]
     Indication: HERPES ZOSTER
     Dosage: 1000MG PER DAY
     Route: 048
     Dates: start: 20031117, end: 20031118
  2. PREDNISOLONE [Concomitant]
     Indication: RHEUMATOID ARTHRITIS
     Dosage: 10MG PER DAY
     Route: 048
  3. GENTAMICIN SULFATE [Concomitant]
     Route: 061
     Dates: start: 20031117
  4. FUROSEMIDE [Concomitant]
     Dosage: 20MG PER DAY
     Route: 048
  5. REBAMIPIDE [Concomitant]
     Dosage: 300MG PER DAY
     Route: 048
  6. AMLODIPINE BESYLATE [Concomitant]
     Indication: HYPERTENSION
     Dosage: 5MG PER DAY
     Route: 048
  7. ALFACALCIDOL [Concomitant]
     Dosage: .25MCG PER DAY
     Route: 048
  8. ATORVASTATIN CALCIUM [Concomitant]
     Dosage: 10MG PER DAY
     Route: 048
  9. NITROGLYCERIN [Concomitant]
     Indication: HYPERTENSION
     Dates: start: 20031118
  10. NIFEDIPINE [Concomitant]
     Dosage: 20MG PER DAY
     Route: 048
     Dates: start: 20031119

REACTIONS (7)
  - DIZZINESS [None]
  - ENCEPHALOPATHY [None]
  - EXCITABILITY [None]
  - HEADACHE [None]
  - LACERATION [None]
  - NAUSEA [None]
  - NERVOUS SYSTEM DISORDER [None]
